FAERS Safety Report 19224896 (Version 3)
Quarter: 2023Q2

REPORT INFORMATION
  Report Type: Spontaneous
  Country: US (occurrence: None)
  Receive Date: 20210505
  Receipt Date: 20230420
  Transmission Date: 20230721
  Serious: No
  Sender: FDA-Public Use
  Company Number: US-ROCHE-2759450

PATIENT
  Age: 88 Year
  Sex: Female

DRUGS (6)
  1. ESBRIET [Suspect]
     Active Substance: PIRFENIDONE
     Indication: Pulmonary fibrosis
     Dosage: AS PER USPI, 267 MG THREE TIMES DAILY (801 MG/DAY) IS LABELED AND AS PER SOURCE DOCUMENT TWICE DAILY
     Route: 048
  2. ESBRIET [Suspect]
     Active Substance: PIRFENIDONE
     Indication: Dyspnoea
     Route: 048
  3. ESBRIET [Suspect]
     Active Substance: PIRFENIDONE
     Indication: Pneumonia streptococcal
  4. ESBRIET [Suspect]
     Active Substance: PIRFENIDONE
     Indication: Idiopathic pulmonary fibrosis
  5. ESBRIET [Suspect]
     Active Substance: PIRFENIDONE
     Indication: Chronic obstructive pulmonary disease
  6. ESBRIET [Suspect]
     Active Substance: PIRFENIDONE
     Indication: COVID-19

REACTIONS (2)
  - Off label use [Unknown]
  - No adverse event [Unknown]
